FAERS Safety Report 9686108 (Version 1)
Quarter: 2013Q4

REPORT INFORMATION
  Report Type: Spontaneous
  Country: CN (occurrence: None)
  Receive Date: 20131108
  Receipt Date: 20131108
  Transmission Date: 20140711
  Serious: Yes (Hospitalization)
  Sender: FDA-Public Use
  Company Number: VAL_02812_2013

PATIENT
  Age: 67 Year
  Sex: Male

DRUGS (1)
  1. LOTENSIN [Suspect]
     Indication: HYPERTENSION
     Route: 048
     Dates: end: 20120810

REACTIONS (2)
  - No therapeutic response [None]
  - Blood pressure systolic increased [None]
